FAERS Safety Report 8258869-9 (Version None)
Quarter: 2012Q2

REPORT INFORMATION
  Report Type: 
  Country: None (occurrence: None)
  Receive Date: 20120404
  Receipt Date: 20120327
  Transmission Date: 20120825
  Serious: Yes (Other)
  Sender: FDA-Public Use
  Company Number: CA-UCBSA-047319

PATIENT
  Age: 53 Year
  Sex: Female

DRUGS (14)
  1. CIMZIA [Suspect]
     Dosage: WEEKS: 0-2-4
     Route: 058
     Dates: start: 20100613, end: 20100711
  2. GLUCOSAMINE WITH MSM [Concomitant]
     Dosage: UNKNOWN DOSE
     Route: 048
  3. CALCIUM WITH VITAMIN D [Concomitant]
     Dosage: UNKNOWN DOSE
     Route: 048
  4. PREDNISONE TAB [Concomitant]
     Indication: RHEUMATOID ARTHRITIS
     Dosage: DOSE:TITRATE ONCE DAILY
     Route: 048
  5. METHOTREXATE [Concomitant]
     Indication: RHEUMATOID ARTHRITIS
     Route: 048
     Dates: start: 20090101
  6. ATIVAN [Concomitant]
     Indication: SLEEP DISORDER
     Dosage: UNKNOWN DOSE
     Route: 048
  7. INDOMETHACIN [Concomitant]
     Route: 048
  8. HYDROXYZIN [Concomitant]
     Route: 048
  9. FOLIC ACID [Concomitant]
     Route: 048
  10. ASCORBIC ACID [Concomitant]
     Dosage: UNKNOWN DOSE
     Route: 048
  11. CIMBALTA [Concomitant]
     Route: 048
  12. CIMZIA [Suspect]
     Indication: RHEUMATOID ARTHRITIS
     Route: 058
     Dates: start: 20100725
  13. RAN CITALO [Concomitant]
     Route: 048
  14. LYRICA [Concomitant]
     Dosage: DOSE:UNK , EVERY NIGHT AT BED TIME
     Route: 048

REACTIONS (6)
  - FIBROMYALGIA [None]
  - URINARY TRACT INFECTION [None]
  - VAGINAL DISCHARGE [None]
  - VULVOVAGINAL MYCOTIC INFECTION [None]
  - WHITE BLOOD CELL COUNT DECREASED [None]
  - PRODUCTIVE COUGH [None]
